FAERS Safety Report 19210422 (Version 5)
Quarter: 2022Q3

REPORT INFORMATION
  Report Type: Report from Study
  Country: US (occurrence: US)
  Receive Date: 20210504
  Receipt Date: 20220629
  Transmission Date: 20221026
  Serious: Yes (Other)
  Sender: FDA-Public Use
  Company Number: NVSC2021US090716

PATIENT
  Sex: Female

DRUGS (1)
  1. COSENTYX [Suspect]
     Active Substance: SECUKINUMAB
     Indication: Product used for unknown indication
     Dosage: UNK
     Route: 065

REACTIONS (6)
  - Hepatic cirrhosis [Unknown]
  - Condition aggravated [Unknown]
  - Rash [Unknown]
  - Infection [Unknown]
  - Decreased immune responsiveness [Unknown]
  - Product dose omission issue [Unknown]
